FAERS Safety Report 7130725-9 (Version None)
Quarter: 2010Q4

REPORT INFORMATION
  Report Type: 
  Country: None (occurrence: None)
  Receive Date: 20101201
  Receipt Date: 20101123
  Transmission Date: 20110411
  Serious: Yes (Hospitalization)
  Sender: FDA-Public Use
  Company Number: US-GILEAD-2010-0033410

PATIENT
  Sex: Male

DRUGS (10)
  1. LETAIRIS [Suspect]
     Indication: PULMONARY ARTERIAL HYPERTENSION
     Route: 048
     Dates: start: 20100301, end: 20100517
  2. ADCIRCA [Suspect]
  3. ASPIRIN [Concomitant]
  4. METOPROLOL TARTRATE [Concomitant]
  5. AMLODIPINE BESYLATE [Concomitant]
  6. DIOVAN [Concomitant]
  7. NATEGLINIDE [Concomitant]
  8. GLIMEPIRIDE [Concomitant]
  9. ALEVE (CAPLET) [Concomitant]
  10. VITAMIN E [Concomitant]

REACTIONS (3)
  - DRUG INEFFECTIVE [None]
  - DYSPNOEA [None]
  - SYNCOPE [None]
